FAERS Safety Report 6232868-0 (Version None)
Quarter: 2009Q2

REPORT INFORMATION
  Report Type: 
  Country: None (occurrence: None)
  Receive Date: 20090617
  Receipt Date: 20090226
  Transmission Date: 20091009
  Serious: No
  Sender: FDA-Public Use
  Company Number: US-ASTRAZENECA-2009UW05320

PATIENT
  Age: 80 Year
  Sex: Female
  Weight: 59.9 kg

DRUGS (9)
  1. FASLODEX [Suspect]
     Route: 030
     Dates: start: 20080901
  2. NEURONTIN [Concomitant]
     Indication: PAIN
  3. NORVASC [Concomitant]
     Indication: HYPERTENSION
  4. BENAZEPRIL HYDROCHLORIDE [Concomitant]
     Indication: HYPERTENSION
  5. TOPROL-XL [Concomitant]
     Indication: HYPERTENSION
  6. CLONIDINE [Concomitant]
     Indication: HYPERTENSION
  7. ISOSORBIDE [Concomitant]
     Indication: CARDIAC DISORDER
  8. ACTONEL [Concomitant]
     Indication: OSTEOPOROSIS
  9. LEVOTHROID [Concomitant]
     Indication: HYPOTHYROIDISM

REACTIONS (2)
  - ALOPECIA [None]
  - HOT FLUSH [None]
